FAERS Safety Report 9161049 (Version 1)
Quarter: 2013Q1

REPORT INFORMATION
  Report Type: Spontaneous
  Country: TR (occurrence: TR)
  Receive Date: 20130313
  Receipt Date: 20130313
  Transmission Date: 20140127
  Serious: Yes (Other)
  Sender: FDA-Public Use
  Company Number: TR-ROXANE LABORATORIES, INC.-2013-RO-00357RO

PATIENT
  Age: 46 Year
  Sex: Female

DRUGS (3)
  1. CITALOPRAM [Suspect]
     Indication: OBSESSIVE-COMPULSIVE DISORDER
     Dosage: 20 MG
  2. CITALOPRAM [Suspect]
     Dosage: 40 MG
  3. FLUVOXAMINE [Suspect]
     Indication: OBSESSIVE-COMPULSIVE DISORDER
     Dosage: 100 MG

REACTIONS (4)
  - Galactorrhoea [Unknown]
  - Blood prolactin increased [Recovered/Resolved]
  - Menstruation irregular [Unknown]
  - Drug ineffective for unapproved indication [Unknown]
